FAERS Safety Report 4524550-2 (Version None)
Quarter: 2004Q4

REPORT INFORMATION
  Report Type: 
  Country: None (occurrence: None)
  Receive Date: 20041117
  Receipt Date: 20040602
  Transmission Date: 20050328
  Serious: Yes (Hospitalization)
  Sender: FDA-Public Use
  Company Number: US-JNJFOC-20040600639

PATIENT
  Age: 44 Year
  Sex: Female
  Weight: 52.9 kg

DRUGS (13)
  1. LEVOFLOXACIN [Suspect]
     Dates: end: 20040315
  2. DAUNORUBICIN (DAUNORUBICIN) [Suspect]
     Indication: ACUTE MYELOID LEUKAEMIA
  3. CYTARABINE [Suspect]
     Indication: MYELOID LEUKAEMIA
  4. AMBISOME [Suspect]
  5. PKC412 (CAPSULES) ALL OTHER THERAPEUTIC PRODUCTS [Concomitant]
  6. VALTREX [Concomitant]
  7. BACTRIM [Concomitant]
  8. PROTONIX [Concomitant]
  9. REGLAN [Concomitant]
  10. SENOKOT [Concomitant]
  11. ZOFRAN [Concomitant]
  12. XANAX [Concomitant]
  13. PROPOXYPHENE (DEXTROPROPOXYPHENE) [Concomitant]

REACTIONS (9)
  - ELECTROCARDIOGRAM QT PROLONGED [None]
  - FATIGUE [None]
  - FEBRILE NEUTROPENIA [None]
  - HAEMORRHOIDS [None]
  - HYPOKALAEMIA [None]
  - HYPOMAGNESAEMIA [None]
  - OEDEMA PERIPHERAL [None]
  - OESOPHAGITIS [None]
  - VENTRICULAR TACHYCARDIA [None]
